FAERS Safety Report 5031916-3 (Version None)
Quarter: 2006Q2

REPORT INFORMATION
  Report Type: 
  Country: None (occurrence: None)
  Receive Date: 20060621
  Receipt Date: 20060524
  Transmission Date: 20061013
  Serious: Yes (Hospitalization, Other)
  Sender: FDA-Public Use
  Company Number: US-GILEAD-2006-0009690

PATIENT
  Age: 14 Month
  Sex: Male

DRUGS (6)
  1. EMTRICITABINE [Suspect]
     Indication: HIV INFECTION
     Route: 048
     Dates: start: 20060522, end: 20060602
  2. EMTRICITABINE [Suspect]
     Dates: end: 20060519
  3. EFAVIRENZ [Concomitant]
     Indication: HIV INFECTION
     Dates: start: 20060522, end: 20060602
  4. EFAVIRENZ [Concomitant]
     Dates: end: 20060519
  5. DIDANOSINE [Concomitant]
     Indication: HIV INFECTION
     Dates: start: 20060522, end: 20060602
  6. DIDANOSINE [Concomitant]
     Dates: end: 20060519

REACTIONS (6)
  - ALANINE AMINOTRANSFERASE INCREASED [None]
  - ASPARTATE AMINOTRANSFERASE INCREASED [None]
  - CONVULSION [None]
  - GAMMA-GLUTAMYLTRANSFERASE ABNORMAL [None]
  - INCORRECT DOSE ADMINISTERED [None]
  - OVERDOSE [None]
